FAERS Safety Report 9247596 (Version 1)
Quarter: 2013Q2

REPORT INFORMATION
  Report Type: Spontaneous
  Country: BR (occurrence: BR)
  Receive Date: 20130423
  Receipt Date: 20130423
  Transmission Date: 20140414
  Serious: Yes (Other)
  Sender: FDA-Public Use
  Company Number: BR-PFIZER INC-2013124904

PATIENT
  Age: 31 Year
  Sex: Female

DRUGS (4)
  1. LYRICA [Suspect]
     Indication: BORDERLINE PERSONALITY DISORDER
     Dosage: 2 CAPSULES OF 75 MG (150 MG) DAILY
     Dates: start: 20130417
  2. RIVOTRIL [Concomitant]
     Indication: SLEEP DISORDER
     Dosage: UNK
     Dates: start: 2009
  3. AMPLICTIL [Concomitant]
     Indication: SLEEP DISORDER
     Dosage: UNK, (STRENGTH 100 MG)
     Dates: start: 2009
  4. DEPAKENE [Concomitant]
     Indication: ANXIETY
     Dosage: UNK, (STRENGTH 500 MG)
     Dates: start: 2009

REACTIONS (2)
  - Scotoma [Unknown]
  - Off label use [Unknown]
